FAERS Safety Report 6840335-6 (Version None)
Quarter: 2010Q3

REPORT INFORMATION
  Report Type: 
  Country: None (occurrence: None)
  Receive Date: 20100714
  Receipt Date: 20100630
  Transmission Date: 20110219
  Serious: No
  Sender: FDA-Public Use
  Company Number: US-B.I. PHARMACEUTICALS,INC./RIDGEFIELD-2010-BP-07405BP

PATIENT
  Age: 59 Year
  Sex: Male

DRUGS (4)
  1. MIRAPEX [Suspect]
     Indication: PARKINSON'S DISEASE
     Route: 048
     Dates: start: 19980101, end: 20100401
  2. SINEMET [Concomitant]
     Indication: PARKINSON'S DISEASE
     Dates: start: 20100402
  3. AVADART [Concomitant]
     Indication: PROSTATOMEGALY
     Dates: start: 20100401
  4. FEMALE HORMONES [Concomitant]

REACTIONS (6)
  - ABDOMINAL PAIN [None]
  - ABDOMINAL PAIN UPPER [None]
  - FEELING ABNORMAL [None]
  - MOVEMENT DISORDER [None]
  - PROSTATOMEGALY [None]
  - WEIGHT DECREASED [None]
